FAERS Safety Report 4819450-4 (Version None)
Quarter: 2005Q4

REPORT INFORMATION
  Report Type: 
  Country: None (occurrence: None)
  Receive Date: 20051103
  Receipt Date: 20051024
  Transmission Date: 20060501
  Serious: Yes (Other)
  Sender: FDA-Public Use
  Company Number: GB-JNJFOC-20051005170

PATIENT
  Sex: Female

DRUGS (2)
  1. GYNO-PEVARYL [Suspect]
     Route: 067
  2. CANESTAN [Concomitant]

REACTIONS (2)
  - MEDICATION ERROR [None]
  - UTERINE CERVICAL EROSION [None]
